FAERS Safety Report 16543644 (Version 1)
Quarter: 2019Q3

REPORT INFORMATION
  Report Type: Spontaneous
  Country: US (occurrence: US)
  Receive Date: 20190709
  Receipt Date: 20190709
  Transmission Date: 20191004
  Serious: No
  Sender: FDA-Public Use
  Company Number: US-TEVA-2019-US-1073258

PATIENT

DRUGS (4)
  1. NEURONTIN [Suspect]
     Active Substance: GABAPENTIN
     Dates: start: 2010
  2. LYRICA [Suspect]
     Active Substance: PREGABALIN
     Dates: start: 2010
  3. FENTANYL. [Suspect]
     Active Substance: FENTANYL
     Dates: start: 2010
  4. ACTIQ [Suspect]
     Active Substance: FENTANYL CITRATE
     Indication: PRODUCT USE IN UNAPPROVED INDICATION
     Dates: start: 2010

REACTIONS (6)
  - Feeling abnormal [Unknown]
  - Dental caries [Unknown]
  - Carpal tunnel syndrome [Unknown]
  - Affective disorder [Unknown]
  - Fatigue [Unknown]
  - Constipation [Unknown]
